FAERS Safety Report 26085388 (Version 2)
Quarter: 2025Q4

REPORT INFORMATION
  Report Type: Spontaneous
  Country: EU (occurrence: EU)
  Receive Date: 20251125
  Receipt Date: 20251202
  Transmission Date: 20260118
  Serious: Yes (Life-Threatening, Hospitalization, Other)
  Sender: ROCHE
  Company Number: EU-ROCHE-10000396225

PATIENT
  Age: 87 Year
  Sex: Female

DRUGS (2)
  1. OCREVUS [Suspect]
     Active Substance: OCRELIZUMAB
     Indication: Relapsing multiple sclerosis
     Dosage: DOSE: 300 MG, FREQUENCY: ONCE EVERY YEAR.
     Route: 042
     Dates: start: 201808
  2. METHYLPREDNISOLONE [Concomitant]
     Active Substance: METHYLPREDNISOLONE
     Dosage: DOSE: 250

REACTIONS (5)
  - Urinary tract infection [Unknown]
  - Tubo-ovarian abscess [Not Recovered/Not Resolved]
  - Sepsis [Not Recovered/Not Resolved]
  - Peritonitis [Unknown]
  - Ileus [Unknown]

NARRATIVE: CASE EVENT DATE: 20250623
